FAERS Safety Report 18555463 (Version 3)
Quarter: 2021Q2

REPORT INFORMATION
  Report Type: Spontaneous
  Country: US (occurrence: US)
  Receive Date: 20201127
  Receipt Date: 20210405
  Transmission Date: 20210717
  Serious: Yes (Other)
  Sender: FDA-Public Use
  Company Number: US-BAUSCH-BL-2020-034142

PATIENT
  Age: 67 Year
  Sex: Female
  Weight: 63.56 kg

DRUGS (12)
  1. VITAMIN D [Concomitant]
     Active Substance: VITAMIN D NOS
     Indication: PRODUCT USED FOR UNKNOWN INDICATION
     Route: 048
  2. VITAMIN C [Concomitant]
     Active Substance: ASCORBIC ACID
     Indication: PRODUCT USED FOR UNKNOWN INDICATION
     Route: 048
  3. DILTIAZEM. [Concomitant]
     Active Substance: DILTIAZEM
     Indication: PRODUCT USED FOR UNKNOWN INDICATION
     Route: 048
  4. DORZOLAMIDE HYDROCHLORIDE AND TIMOLOL MALEATE [Concomitant]
     Active Substance: DORZOLAMIDE HYDROCHLORIDE\TIMOLOL MALEATE
     Indication: GLAUCOMA
     Dosage: STARTED MANY YEARS AGO
     Route: 047
     Dates: end: 202004
  5. LEVOBUNOLOL HYDROCHLORIDE OPHTHALMIC SOLUTION USP 0.5% [Suspect]
     Active Substance: LEVOBUNOLOL HYDROCHLORIDE
     Dosage: RESTARTED
     Route: 047
     Dates: start: 20201117, end: 20201118
  6. PREDNISOLONE ACETATE. [Concomitant]
     Active Substance: PREDNISOLONE ACETATE
     Indication: PRODUCT USED FOR UNKNOWN INDICATION
     Dosage: AS DIRECTED
     Route: 047
  7. RHOPRESSA [Concomitant]
     Active Substance: NETARSUDIL MESYLATE
     Indication: PRODUCT USED FOR UNKNOWN INDICATION
  8. ACYCLOVIR. [Concomitant]
     Active Substance: ACYCLOVIR
     Indication: PRODUCT USED FOR UNKNOWN INDICATION
  9. LEVOBUNOLOL HYDROCHLORIDE OPHTHALMIC SOLUTION USP 0.5% [Suspect]
     Active Substance: LEVOBUNOLOL HYDROCHLORIDE
     Indication: GLAUCOMA
     Route: 047
     Dates: start: 202004, end: 20201112
  10. BRIMONIDINE [Suspect]
     Active Substance: BRIMONIDINE TARTRATE
     Indication: PRODUCT USED FOR UNKNOWN INDICATION
     Dosage: CURRENT MEDICATION
     Route: 065
     Dates: start: 2020
  11. LATANOPROST. [Concomitant]
     Active Substance: LATANOPROST
     Indication: PRODUCT USED FOR UNKNOWN INDICATION
  12. BIOTIN [Concomitant]
     Active Substance: BIOTIN
     Indication: PRODUCT USED FOR UNKNOWN INDICATION
     Route: 048

REACTIONS (6)
  - Product quality issue [Unknown]
  - Therapy interrupted [Unknown]
  - Headache [Unknown]
  - Eye irritation [Unknown]
  - Intraocular pressure increased [Unknown]
  - Eye pain [Unknown]

NARRATIVE: CASE EVENT DATE: 2020
